FAERS Safety Report 23283543 (Version 5)
Quarter: 2024Q2

REPORT INFORMATION
  Report Type: Spontaneous
  Country: IT (occurrence: IT)
  Receive Date: 20231211
  Receipt Date: 20240513
  Transmission Date: 20240716
  Serious: Yes (Hospitalization, Other)
  Sender: FDA-Public Use
  Company Number: IT-DOCGEN-2307861

PATIENT
  Age: 60 Year
  Sex: Male

DRUGS (22)
  1. CLOZAPINE [Suspect]
     Active Substance: CLOZAPINE
     Indication: Hallucination, auditory
     Dosage: 200 MILLIGRAM, QD
     Route: 065
     Dates: start: 2004, end: 2018
  2. CLOZAPINE [Suspect]
     Active Substance: CLOZAPINE
     Indication: Depressive symptom
     Dosage: 225 MILLIGRAM, QD
     Route: 065
     Dates: start: 201811, end: 2022
  3. CLOZAPINE [Suspect]
     Active Substance: CLOZAPINE
     Indication: Schizophrenia
     Dosage: 100 MILLIGRAM
     Route: 048
     Dates: start: 202209
  4. CITALOPRAM [Suspect]
     Active Substance: CITALOPRAM\CITALOPRAM HYDROBROMIDE
     Indication: Depressive symptom
     Dosage: 40 MILLIGRAM, QD
     Route: 065
  5. CITALOPRAM [Suspect]
     Active Substance: CITALOPRAM\CITALOPRAM HYDROBROMIDE
     Indication: Schizophrenia
     Dosage: 10 MILLIGRAM, QD
     Route: 065
     Dates: start: 2002
  6. CITALOPRAM [Suspect]
     Active Substance: CITALOPRAM\CITALOPRAM HYDROBROMIDE
     Dosage: 20 MILLIGRAM, QD
     Route: 065
     Dates: start: 201811
  7. BROTIZOLAM [Suspect]
     Active Substance: BROTIZOLAM
     Indication: Anxiety
     Dosage: UNK, AS NECESSARY
     Route: 065
     Dates: start: 1990
  8. BROTIZOLAM [Suspect]
     Active Substance: BROTIZOLAM
     Indication: Schizophrenia
  9. HALOPERIDOL [Suspect]
     Active Substance: HALOPERIDOL
     Indication: Anxiety
     Dosage: 30 GTT DROPS, QD (15 DROP, BID)
     Route: 065
  10. HALOPERIDOL [Suspect]
     Active Substance: HALOPERIDOL
     Indication: Hallucination, auditory
     Dosage: 50 MILLIGRAM, MONTHLY
     Route: 065
     Dates: start: 1990, end: 2002
  11. HALOPERIDOL [Suspect]
     Active Substance: HALOPERIDOL
     Indication: Schizophrenia
     Dosage: 50 MILLIGRAM, MONTHLY
     Route: 065
     Dates: start: 2002, end: 2002
  12. HALOPERIDOL [Suspect]
     Active Substance: HALOPERIDOL
     Dosage: 16 GTT DROPS, QD
     Route: 065
     Dates: start: 201811
  13. BIPERIDEN [Suspect]
     Active Substance: BIPERIDEN
     Indication: Hallucination, auditory
     Dosage: 4 MILLIGRAM, QD
     Route: 065
     Dates: start: 201811
  14. BIPERIDEN [Suspect]
     Active Substance: BIPERIDEN
     Indication: Schizophrenia
  15. OLANZAPINE [Suspect]
     Active Substance: OLANZAPINE
     Indication: Depressive symptom
     Dosage: 20 MILLIGRAM, QD
     Route: 065
     Dates: start: 2002
  16. OLANZAPINE [Suspect]
     Active Substance: OLANZAPINE
     Indication: Schizophrenia
  17. RIVOTRIL [Suspect]
     Active Substance: CLONAZEPAM
     Indication: Hallucination, auditory
     Dosage: 12 GTT DROPS, QD
     Route: 065
     Dates: start: 201811
  18. RIVOTRIL [Suspect]
     Active Substance: CLONAZEPAM
     Indication: Schizophrenia
     Dosage: 10 GTT DROPS, QD
     Route: 065
  19. ALPRAZOLAM [Suspect]
     Active Substance: ALPRAZOLAM
     Indication: Anxiety
     Dosage: UNK
     Route: 065
     Dates: start: 1990
  20. ALPRAZOLAM [Suspect]
     Active Substance: ALPRAZOLAM
     Indication: Schizophrenia
  21. LURASIDONE [Concomitant]
     Active Substance: LURASIDONE
     Indication: Schizophrenia
     Dosage: 148 MILLIGRAM, QD
     Route: 065
  22. LURASIDONE [Concomitant]
     Active Substance: LURASIDONE
     Dosage: UNK
     Route: 065
     Dates: start: 201811

REACTIONS (7)
  - Psychomotor retardation [Unknown]
  - Weight increased [Unknown]
  - Sedation [Unknown]
  - Therapy partial responder [Unknown]
  - Medication error [Unknown]
  - Social problem [Unknown]
  - Treatment noncompliance [Unknown]

NARRATIVE: CASE EVENT DATE: 20040101
